FAERS Safety Report 9695250 (Version 3)
Quarter: 2013Q4

REPORT INFORMATION
  Report Type: Report from Study
  Country: DE (occurrence: DE)
  Receive Date: 20131119
  Receipt Date: 20131126
  Transmission Date: 20140711
  Serious: Yes (Hospitalization)
  Sender: FDA-Public Use
  Company Number: DE-BAYER-2013-137876

PATIENT
  Sex: Male
  Weight: 73 kg

DRUGS (17)
  1. ALPHARADIN [Suspect]
     Indication: HORMONE-REFRACTORY PROSTATE CANCER
     Dosage: 3650 KBQ, ONCE
     Route: 042
     Dates: start: 20131024, end: 20131024
  2. ALPHARADIN [Suspect]
     Indication: METASTASES TO BONE
  3. FENTANYL [Concomitant]
     Dosage: 5.78 MG ^ALL THREE DAYS^
  4. NOVAMINSULFON [Concomitant]
     Dosage: 500 MG, ^4X30 DROPS^
  5. ALLOPURINOL [Concomitant]
     Indication: HYPERURICAEMIA
     Dosage: 100 MG, QD
     Dates: start: 2013, end: 20131024
  6. BACLOFEN [Concomitant]
     Indication: MUSCLE SPASMS
     Dosage: 10 MG, QD
     Dates: start: 20130729
  7. BISOPROLOL [Concomitant]
     Indication: HYPERTONIA
     Dosage: 5 MG, QD
     Dates: start: 20130323
  8. CLEXANE [Concomitant]
     Dosage: 40 MG, QD
     Dates: start: 20130619
  9. EURAX [Concomitant]
     Indication: HYPOTHYROIDISM
     Dosage: 150 MG, QD
     Dates: start: 20130810
  10. EZETROL [Concomitant]
     Indication: HYPERCHOLESTEROLAEMIA
     Dosage: 10 MG, QD
     Dates: start: 20110222, end: 20131024
  11. LIMPTAR [Concomitant]
     Indication: MUSCLE SPASMS
     Dosage: 200 MG, QD
     Dates: start: 20130620, end: 20131024
  12. LOPERAMID [Concomitant]
     Dosage: 2 MG, QD
     Dates: start: 20080513
  13. PROFACT [Concomitant]
     Dosage: 9.9 MG ONCE ALL THREE MONTH
     Dates: start: 200305
  14. PROVAS [Concomitant]
     Indication: HYPERTONIA
     Dosage: 160 MG, QD
     Dates: start: 20071208
  15. SIMVASTATIN [Concomitant]
     Indication: HYPERCHOLESTEROLAEMIA
     Dosage: 20 MG, QD
     Dates: start: 20100205, end: 20131024
  16. TRIAMTEREN COMP [Concomitant]
     Indication: HYPERCHOLESTEROLAEMIA
     Dosage: 25/50 MG ONCE PER DAY
     Dates: start: 20060609
  17. XIPAMID [Concomitant]
     Indication: HYPERTONIA
     Dosage: 10 MG, BID
     Dates: start: 20100818, end: 20131024

REACTIONS (2)
  - Pathological fracture [Unknown]
  - Pleural effusion [Unknown]
